FAERS Safety Report 7954405-2 (Version None)
Quarter: 2011Q4

REPORT INFORMATION
  Report Type: 
  Country: None (occurrence: None)
  Receive Date: 20111202
  Receipt Date: 20111128
  Transmission Date: 20120403
  Serious: Yes (Hospitalization)
  Sender: FDA-Public Use
  Company Number: US-GLAXOSMITHKLINE-A0955264A

PATIENT
  Age: 72 Year
  Sex: Female

DRUGS (8)
  1. ADVAIR DISKUS 100/50 [Suspect]
     Dosage: 1PUFF TWICE PER DAY
     Route: 055
  2. PLAVIX [Concomitant]
  3. ALBUTEROL INHALER [Concomitant]
  4. PREVACID [Concomitant]
  5. ADVAIR DISKUS 100/50 [Suspect]
     Indication: EMPHYSEMA
     Dosage: 1PUFF TWICE PER DAY
     Route: 055
     Dates: start: 20010101, end: 20110301
  6. AVAPRO [Concomitant]
  7. ASCORBIC ACID [Concomitant]
  8. MICARDIS [Concomitant]

REACTIONS (17)
  - DYSPNOEA EXERTIONAL [None]
  - LIP DRY [None]
  - PAIN [None]
  - DYSPHAGIA [None]
  - BRONCHITIS [None]
  - SINUSITIS [None]
  - DYSPHONIA [None]
  - ORAL PAIN [None]
  - STOMATITIS [None]
  - GLOSSODYNIA [None]
  - SPEECH DISORDER [None]
  - CANDIDIASIS [None]
  - APHONIA [None]
  - ORAL DISORDER [None]
  - MOUTH ULCERATION [None]
  - DRUG ADMINISTRATION ERROR [None]
  - DRY MOUTH [None]
